FAERS Safety Report 18077631 (Version 7)
Quarter: 2020Q4

REPORT INFORMATION
  Report Type: Report from Study
  Country: NL (occurrence: NL)
  Receive Date: 20200728
  Receipt Date: 20201022
  Transmission Date: 20210113
  Serious: Yes (Other)
  Sender: FDA-Public Use
  Company Number: NL-AMGEN-NLDSL2020029782

PATIENT
  Age: 75 Year
  Sex: Female

DRUGS (10)
  1. OMEPRAZOL [OMEPRAZOLE] [Concomitant]
     Active Substance: OMEPRAZOLE
     Dosage: 20 MILLIGRAM, QD
  2. CHLORHEXIDINE [Concomitant]
     Active Substance: CHLORHEXIDINE
     Dosage: 1.2 MILLIGRAM PER MILLILITRE, BID
  3. CLOBETASOL [Concomitant]
     Active Substance: CLOBETASOL
     Dosage: 0.5 MILLIGRAM PER GRAM
  4. LETROZOL [Concomitant]
     Active Substance: LETROZOLE
     Dosage: 2.5 MILLIGRAM, QD
  5. XGEVA [Suspect]
     Active Substance: DENOSUMAB
     Indication: PROPHYLAXIS
     Dosage: 120 MILLIGRAM, Q4WK,70MG/ML FLACON 1,7ML
     Route: 058
     Dates: start: 20190517
  6. IBUPROFEN. [Concomitant]
     Active Substance: IBUPROFEN
     Dosage: 600 MILLIGRAM, (2-3D1S)
  7. XGEVA [Suspect]
     Active Substance: DENOSUMAB
     Dosage: 120 MILLIGRAM, Q4WK,70MG/ML FLACON 1,7ML
     Route: 058
  8. LANETTE [Concomitant]
     Dosage: UNK
  9. AMOXICILLIN/CLAVULANIC ACID [Concomitant]
     Active Substance: AMOXICILLIN\CLAVULANIC ACID
     Dosage: UNK,UNK, (500/125MG), TID
  10. VASELINE PURE [Concomitant]
     Active Substance: PETROLATUM
     Dosage: 10 PERCENT,2D-CR

REACTIONS (3)
  - Osteitis [Not Recovered/Not Resolved]
  - Tooth extraction [Recovered/Resolved]
  - Osteonecrosis of jaw [Unknown]

NARRATIVE: CASE EVENT DATE: 20200416
